FAERS Safety Report 17432153 (Version 2)
Quarter: 2020Q3

REPORT INFORMATION
  Report Type: Spontaneous
  Country: US (occurrence: US)
  Receive Date: 20200218
  Receipt Date: 20200716
  Transmission Date: 20201102
  Serious: No
  Sender: FDA-Public Use
  Company Number: US-SA-2020SA038934

PATIENT

DRUGS (2)
  1. DUPIXENT [Suspect]
     Active Substance: DUPILUMAB
     Indication: DERMATITIS ATOPIC
  2. DUPIXENT [Suspect]
     Active Substance: DUPILUMAB
     Indication: ASTHMA
     Dosage: 300 MG, QOW
     Route: 058
     Dates: start: 20190619

REACTIONS (5)
  - Feeling hot [Recovering/Resolving]
  - Lip dry [Unknown]
  - Ocular hyperaemia [Unknown]
  - Chapped lips [Unknown]
  - Eye irritation [Unknown]

NARRATIVE: CASE EVENT DATE: 201907
